FAERS Safety Report 8156579-X (Version None)
Quarter: 2012Q1

REPORT INFORMATION
  Report Type: 
  Country: None (occurrence: None)
  Receive Date: 20120222
  Receipt Date: 20120215
  Transmission Date: 20120608
  Serious: No
  Sender: FDA-Public Use
  Company Number: US-B.I. PHARMACEUTICALS,INC./RIDGEFIELD-2012-BP-01120BP

PATIENT
  Age: 72 Year
  Sex: Male

DRUGS (4)
  1. PRADAXA [Suspect]
     Indication: ATRIAL FIBRILLATION
     Dosage: 300 MG
     Route: 048
     Dates: start: 20101101
  2. CARAFATE [Concomitant]
     Indication: PROPHYLAXIS
  3. ARANESP [Concomitant]
     Indication: RED BLOOD CELL COUNT ABNORMAL
  4. METOPROLOL TARTRATE [Concomitant]
     Indication: CARDIOVASCULAR DISORDER

REACTIONS (3)
  - COAGULATION TIME [None]
  - HAEMOGLOBIN [None]
  - HAEMOGLOBIN DECREASED [None]
